FAERS Safety Report 6685898-9 (Version None)
Quarter: 2010Q2

REPORT INFORMATION
  Report Type: 
  Country: None (occurrence: None)
  Receive Date: 20100419
  Receipt Date: 20100409
  Transmission Date: 20101027
  Serious: Yes (Life-Threatening)
  Sender: FDA-Public Use
  Company Number: GB-TEVA-230657ISR

PATIENT
  Age: 68 Year
  Sex: Female

DRUGS (2)
  1. OXALIPLATIN [Suspect]
     Indication: GASTROINTESTINAL CARCINOMA
     Dates: start: 20091101
  2. FLUOROURACIL [Suspect]
     Indication: GASTROINTESTINAL CARCINOMA
     Dates: start: 20091101

REACTIONS (1)
  - EJECTION FRACTION DECREASED [None]
